FAERS Safety Report 8218564-9 (Version None)
Quarter: 2012Q1

REPORT INFORMATION
  Report Type: 
  Country: None (occurrence: None)
  Receive Date: 20120319
  Receipt Date: 20120305
  Transmission Date: 20120608
  Serious: Yes (Other)
  Sender: FDA-Public Use
  Company Number: IT-CELGENEUS-083-21880-11123055

PATIENT
  Sex: Female

DRUGS (7)
  1. REVLIMID [Suspect]
     Indication: MULTIPLE MYELOMA
     Dosage: 10 MILLIGRAM
     Route: 048
     Dates: start: 20091229, end: 20111221
  2. CYCLOPHOSPHAMIDE [Concomitant]
     Indication: MULTIPLE MYELOMA
     Route: 065
     Dates: start: 20091126
  3. BUPRENORPHINE HCL [Concomitant]
     Dosage: 16.6667 MICROGRAM
     Route: 065
  4. MELPHALAN HYDROCHLORIDE [Concomitant]
     Indication: MULTIPLE MYELOMA
     Route: 065
     Dates: start: 20091126
  5. ZOMETA [Concomitant]
     Dosage: .1333 GRAM
     Route: 065
  6. ANTIHYPERTENSIVES [Concomitant]
     Route: 065
  7. LMWH [Concomitant]
     Dosage: 133.3333 IU (INTERNATIONAL UNIT)
     Route: 065

REACTIONS (1)
  - MENINGIOMA MALIGNANT [None]
